FAERS Safety Report 19602850 (Version 2)
Quarter: 2021Q3

REPORT INFORMATION
  Report Type: Spontaneous
  Country: DE (occurrence: DE)
  Receive Date: 20210723
  Receipt Date: 20210805
  Transmission Date: 20211014
  Serious: Yes (Other)
  Sender: FDA-Public Use
  Company Number: DE-TORRENT-00020759

PATIENT
  Age: 28 Year
  Sex: Male

DRUGS (2)
  1. OLANZAPINE. [Suspect]
     Active Substance: OLANZAPINE
     Indication: PRODUCT USED FOR UNKNOWN INDICATION
     Dates: start: 20200903, end: 20200907
  2. RISPERIDONE. [Suspect]
     Active Substance: RISPERIDONE
     Indication: PRODUCT USED FOR UNKNOWN INDICATION
     Dates: start: 20200820, end: 20200820

REACTIONS (7)
  - Musculoskeletal stiffness [Unknown]
  - Pruritus [Unknown]
  - Restless legs syndrome [Recovering/Resolving]
  - Erectile dysfunction [Unknown]
  - Confusional state [Unknown]
  - Sleep disorder [Unknown]
  - Apathy [Unknown]

NARRATIVE: CASE EVENT DATE: 20200813
